FAERS Safety Report 18961281 (Version 2)
Quarter: 2022Q1

REPORT INFORMATION
  Report Type: Spontaneous
  Country: US (occurrence: US)
  Receive Date: 20210302
  Receipt Date: 20220113
  Transmission Date: 20220423
  Serious: No
  Sender: FDA-Public Use
  Company Number: US-BAUSCH-BL-2021-003906

PATIENT
  Age: 71 Year
  Sex: Female

DRUGS (12)
  1. BRIMONIDINE [Suspect]
     Active Substance: BRIMONIDINE TARTRATE
     Indication: Glaucoma
     Route: 047
     Dates: start: 20190719, end: 20190721
  2. NP THYROID [Suspect]
     Active Substance: LEVOTHYROXINE\LIOTHYRONINE
     Indication: Hypothyroidism
     Dosage: ONE AND ONE-HALF TABLET DAILY
     Route: 048
     Dates: start: 201312
  3. NP THYROID [Suspect]
     Active Substance: LEVOTHYROXINE\LIOTHYRONINE
     Dosage: ONE AND ONE-FOURTH TABLET
     Route: 048
     Dates: start: 20190417, end: 20190417
  4. NP THYROID [Suspect]
     Active Substance: LEVOTHYROXINE\LIOTHYRONINE
     Route: 048
     Dates: start: 20190418, end: 20190418
  5. NP THYROID [Suspect]
     Active Substance: LEVOTHYROXINE\LIOTHYRONINE
     Dosage: HALF TABLET
     Route: 048
     Dates: start: 20190419, end: 20190419
  6. NP THYROID [Suspect]
     Active Substance: LEVOTHYROXINE\LIOTHYRONINE
     Dosage: THREE FOURTH TABLET
     Route: 048
     Dates: start: 201906, end: 201906
  7. NP THYROID [Suspect]
     Active Substance: LEVOTHYROXINE\LIOTHYRONINE
     Route: 048
     Dates: start: 201906, end: 201906
  8. NP THYROID [Suspect]
     Active Substance: LEVOTHYROXINE\LIOTHYRONINE
     Route: 048
     Dates: start: 201909
  9. NP THYROID [Suspect]
     Active Substance: LEVOTHYROXINE\LIOTHYRONINE
     Route: 048
     Dates: start: 20200624
  10. LATANOPROST [Concomitant]
     Active Substance: LATANOPROST
     Indication: Product used for unknown indication
  11. DORZOLAMIDE [Concomitant]
     Active Substance: DORZOLAMIDE
     Indication: Product used for unknown indication
  12. HERBALS [Concomitant]
     Active Substance: HERBALS
     Indication: Product used for unknown indication

REACTIONS (1)
  - Paraesthesia [Not Recovered/Not Resolved]

NARRATIVE: CASE EVENT DATE: 20190701
